FAERS Safety Report 9885426 (Version 3)
Quarter: 2014Q3

REPORT INFORMATION
  Report Type: Spontaneous
  Country: US (occurrence: US)
  Receive Date: 20140210
  Receipt Date: 20140812
  Transmission Date: 20150326
  Serious: No
  Sender: FDA-Public Use
  Company Number: US-PFIZER INC-2014037413

PATIENT
  Age: 61 Year
  Sex: Female
  Weight: 117.91 kg

DRUGS (4)
  1. LYRICA [Suspect]
     Active Substance: PREGABALIN
     Indication: ARTERIAL STENOSIS
     Dosage: UNK
     Dates: start: 2013, end: 201312
  2. LYRICA [Suspect]
     Active Substance: PREGABALIN
     Dosage: 75 MG, 2X/DAY
  3. LYRICA [Suspect]
     Active Substance: PREGABALIN
     Dosage: 75 MG, DAILY
  4. LISINOPRIL. [Concomitant]
     Active Substance: LISINOPRIL
     Indication: HYPERTENSION
     Dosage: 20 MG, DAILY

REACTIONS (8)
  - Drug withdrawal syndrome [Unknown]
  - Nervousness [Unknown]
  - Blood cholesterol increased [Unknown]
  - Nausea [Unknown]
  - Tremor [Unknown]
  - Back pain [Unknown]
  - Blood triglycerides increased [Unknown]
  - Somnolence [Unknown]

NARRATIVE: CASE EVENT DATE: 201312
